FAERS Safety Report 8338099-2 (Version None)
Quarter: 2012Q2

REPORT INFORMATION
  Report Type: 
  Country: None (occurrence: None)
  Receive Date: 20120504
  Receipt Date: 20120427
  Transmission Date: 20120825
  Serious: Yes (Hospitalization)
  Sender: FDA-Public Use
  Company Number: PHEH2012US007564

PATIENT
  Sex: Male

DRUGS (13)
  1. ASPIRIN [Concomitant]
     Dosage: 325 MG, QD
     Dates: start: 20120405, end: 20120405
  2. PEPCID [Concomitant]
     Dosage: 20 MG, QD
     Dates: start: 20120406, end: 20120409
  3. KEPPRA [Concomitant]
     Dosage: 1000 MG, UNK, STAT
     Dates: start: 20120405, end: 20120405
  4. KEPPRA [Concomitant]
     Dosage: 500 MG, BID
     Dates: start: 20120409
  5. XYLOCAINE [Concomitant]
     Dosage: 1 DF, TID, 2 % SOLUTION
     Dates: start: 20120406, end: 20120409
  6. ATIVAN [Concomitant]
     Dosage: 2 MG, Q4H
     Dates: start: 20120405, end: 20120409
  7. MAGNESIUM SULFATE [Concomitant]
     Dosage: 2 G, PRN
     Dates: start: 20120405, end: 20120409
  8. GILENYA [Suspect]
     Indication: MULTIPLE SCLEROSIS
     Dosage: 0.5 MG, DAILY
     Route: 048
     Dates: start: 20120327
  9. NEURONTIN [Concomitant]
     Dosage: 300 MG, PRN
  10. LOVENOX [Concomitant]
     Dosage: 40 MG, UNK EVERY 24 HOURS
     Dates: start: 20120405, end: 20120409
  11. ZOFRAN [Concomitant]
     Dosage: 4 MG, Q4H
     Dates: start: 20120405, end: 20120409
  12. MULTIHANCE [Concomitant]
     Dosage: 10 ML, UNK, RAD
     Dates: start: 20120405, end: 20120405
  13. KEPPRA [Concomitant]
     Dosage: 500 MG, BID
     Dates: start: 20120405, end: 20120405

REACTIONS (12)
  - CENTRAL NERVOUS SYSTEM LESION [None]
  - MUSCULAR WEAKNESS [None]
  - GAIT DISTURBANCE [None]
  - CONFUSIONAL STATE [None]
  - DYSARTHRIA [None]
  - BALANCE DISORDER [None]
  - HYPOAESTHESIA [None]
  - HEADACHE [None]
  - MULTIPLE SCLEROSIS [None]
  - CONVULSION [None]
  - NECK PAIN [None]
  - MENTAL STATUS CHANGES [None]
